FAERS Safety Report 9886579 (Version 1)
Quarter: 2014Q1

REPORT INFORMATION
  Report Type: Spontaneous
  Country: US (occurrence: US)
  Receive Date: 20140210
  Receipt Date: 20140210
  Transmission Date: 20141002
  Serious: Yes (Hospitalization, Other)
  Sender: FDA-Public Use
  Company Number: US-ELI_LILLY_AND_COMPANY-US201401010704

PATIENT
  Age: 63 Year
  Sex: Male

DRUGS (9)
  1. HUMALOG LISPRO [Suspect]
     Indication: TYPE 2 DIABETES MELLITUS
     Dosage: UNK, PRN
     Route: 065
     Dates: start: 2009
  2. HUMALOG LISPRO [Suspect]
     Indication: TYPE 2 DIABETES MELLITUS
     Route: 065
  3. FUROSEMIDE [Concomitant]
     Dosage: 40 MG, QD
     Route: 065
  4. LISINOPRIL [Concomitant]
     Dosage: 10 MG, QD
     Route: 065
  5. IRON [Concomitant]
     Dosage: UNK, QD
     Route: 065
  6. WARFARIN [Concomitant]
     Dosage: 5 MG, EACH EVENING
     Route: 065
  7. METOPROLOL [Concomitant]
     Dosage: 25 MG, QD
     Route: 065
  8. SIMVASTATIN [Concomitant]
     Dosage: 40 MG, QD
     Route: 065
  9. GABAPENTIN [Concomitant]
     Dosage: 300 MG, TID
     Route: 065

REACTIONS (5)
  - Localised infection [Unknown]
  - Blood glucose increased [Unknown]
  - Wound [Not Recovered/Not Resolved]
  - Decreased activity [Unknown]
  - Visual impairment [Unknown]
